FAERS Safety Report 12755255 (Version 5)
Quarter: 2017Q2

REPORT INFORMATION
  Report Type: Report from Study
  Country: AT (occurrence: AT)
  Receive Date: 20160916
  Receipt Date: 20170522
  Transmission Date: 20170830
  Serious: Yes (Hospitalization)
  Sender: FDA-Public Use
  Company Number: PHHO2016AT013457

PATIENT
  Age: 50 Year
  Sex: Male
  Weight: 90 kg

DRUGS (5)
  1. VIPDOMET [Concomitant]
     Active Substance: ALOGLIPTIN BENZOATE\METFORMIN HYDROCHLORIDE
     Indication: PRODUCT USED FOR UNKNOWN INDICATION
     Dosage: 12.5 MG, QD
     Route: 065
  2. SYNJARDY [Concomitant]
     Active Substance: EMPAGLIFLOZIN\METFORMIN HYDROCHLORIDE
     Indication: PRODUCT USED FOR UNKNOWN INDICATION
     Dosage: 5 MG, QD
     Route: 065
  3. PANTOPRAZOL [Concomitant]
     Active Substance: PANTOPRAZOLE SODIUM
     Indication: PRODUCT USED FOR UNKNOWN INDICATION
     Dosage: 20 MG, QD
     Route: 065
  4. AIN457 [Suspect]
     Active Substance: SECUKINUMAB
     Indication: PSORIASIS
     Dosage: 300 MG, QW4
     Route: 058
     Dates: start: 20151217
  5. LOSARTAN. [Concomitant]
     Active Substance: LOSARTAN
     Indication: PRODUCT USED FOR UNKNOWN INDICATION
     Dosage: 500 MG, QD
     Route: 065

REACTIONS (1)
  - Herpes zoster [Recovered/Resolved]

NARRATIVE: CASE EVENT DATE: 20160912
